FAERS Safety Report 20531316 (Version 2)
Quarter: 2022Q1

REPORT INFORMATION
  Report Type: Spontaneous
  Country: US (occurrence: US)
  Receive Date: 20220301
  Receipt Date: 20220321
  Transmission Date: 20220423
  Serious: No
  Sender: FDA-Public Use
  Company Number: US-BIOVITRUM-2022US02952

PATIENT
  Sex: Female

DRUGS (2)
  1. KINERET [Suspect]
     Active Substance: ANAKINRA
     Indication: Rheumatoid arthritis
     Route: 058
     Dates: start: 20210210
  2. KINERET [Suspect]
     Active Substance: ANAKINRA
     Route: 058
     Dates: start: 202104

REACTIONS (7)
  - Pain in extremity [Unknown]
  - Ligament sprain [Unknown]
  - Arthralgia [Unknown]
  - Gait disturbance [Unknown]
  - Dysstasia [Unknown]
  - Drug ineffective [Unknown]
  - Product dose omission issue [Unknown]
